FAERS Safety Report 4373967-8 (Version None)
Quarter: 2004Q1

REPORT INFORMATION
  Report Type: 
  Country: None (occurrence: None)
  Receive Date: 20040305
  Receipt Date: 20031203
  Transmission Date: 20041129
  Serious: Yes (Other)
  Sender: FDA-Public Use
  Company Number: 2003UW15977

PATIENT
  Age: 33 Year
  Sex: Male
  Weight: 82.5547 kg

DRUGS (2)
  1. CRESTOR [Suspect]
     Indication: BLOOD TRIGLYCERIDES INCREASED
     Dosage: 10 MG DAILY PO
     Route: 048
  2. SKELAXIN [Concomitant]

REACTIONS (3)
  - CHEST PAIN [None]
  - DRY MOUTH [None]
  - DYSGEUSIA [None]
